FAERS Safety Report 22201128 (Version 3)
Quarter: 2024Q1

REPORT INFORMATION
  Report Type: Spontaneous
  Country: US (occurrence: US)
  Receive Date: 20230412
  Receipt Date: 20240305
  Transmission Date: 20240410
  Serious: No
  Sender: FDA-Public Use
  Company Number: US-GSK-US2023AMR051681

PATIENT
  Sex: Female

DRUGS (4)
  1. BENLYSTA [Suspect]
     Active Substance: BELIMUMAB
     Indication: Systemic lupus erythematosus
     Dosage: 200 MG/ML, WE
     Route: 058
  2. BENLYSTA [Suspect]
     Active Substance: BELIMUMAB
     Indication: Systemic lupus erythematosus
     Dosage: 200 MG/ML
  3. BENLYSTA [Suspect]
     Active Substance: BELIMUMAB
     Indication: Type 2 diabetes mellitus
  4. BENLYSTA [Suspect]
     Active Substance: BELIMUMAB
     Indication: Hyperglycaemia

REACTIONS (8)
  - Infection [Unknown]
  - Tooth loss [Unknown]
  - Rash [Unknown]
  - Urinary tract infection [Unknown]
  - Pain [Unknown]
  - Abdominal pain upper [Unknown]
  - Product use in unapproved indication [Unknown]
  - Product dose omission issue [Unknown]
